FAERS Safety Report 5855825-2 (Version None)
Quarter: 2008Q3

REPORT INFORMATION
  Report Type: 
  Country: None (occurrence: None)
  Receive Date: 20080825
  Receipt Date: 20070913
  Transmission Date: 20090109
  Serious: No
  Sender: FDA-Public Use
  Company Number: A0681860A

PATIENT
  Age: 76 Year
  Sex: Male

DRUGS (11)
  1. MALARONE [Suspect]
     Indication: MALARIA PROPHYLAXIS
     Dosage: 2TAB PER DAY
     Route: 048
     Dates: start: 20070701
  2. LISINOPRIL [Concomitant]
  3. FINASTERIDE [Concomitant]
  4. RANITIDINE [Concomitant]
  5. TICLOPIDINE HCL [Concomitant]
  6. FLOVENT [Concomitant]
  7. ALBUTEROL [Concomitant]
  8. VYTORIN [Concomitant]
  9. METOPROLOL TARTRATE [Concomitant]
  10. GLUCOSAMINE CHONDROITIN [Concomitant]
  11. CO Q10 ENZYME [Concomitant]

REACTIONS (5)
  - ABDOMINAL PAIN [None]
  - ANTINUCLEAR ANTIBODY POSITIVE [None]
  - ASTHENIA [None]
  - HYPONATRAEMIA [None]
  - OVERDOSE [None]
